FAERS Safety Report 7114632-3 (Version None)
Quarter: 2010Q4

REPORT INFORMATION
  Report Type: 
  Country: None (occurrence: None)
  Receive Date: 20101121
  Receipt Date: 20101116
  Transmission Date: 20110411
  Serious: Yes (Hospitalization)
  Sender: FDA-Public Use
  Company Number: US-BRISTOL-MYERS SQUIBB COMPANY-15351935

PATIENT
  Age: 71 Year
  Sex: Male
  Weight: 91 kg

DRUGS (14)
  1. CARBOPLATIN [Suspect]
     Indication: NON-SMALL CELL LUNG CANCER
     Dosage: LAST DOSE ON 30SEP10 DELAYED FOR 15DAYS
     Dates: start: 20100826, end: 20100930
  2. TAXOL [Suspect]
     Indication: NON-SMALL CELL LUNG CANCER
     Dosage: LAST DOSE ON 30SEP10 DELAYED FOR 15DAYS
     Dates: start: 20100826
  3. RADIATION THERAPY [Suspect]
     Indication: NON-SMALL CELL LUNG CANCER
     Dosage: 1DF =60GY,LAST DOSE ON 10JUL10,RADIATION ADMIN:EXTERNAL BEAM,3D,NO OF FRAC:30,NO OF ELAPSED DAY:42
     Dates: start: 20100826
  4. ALBUTEROL SULFATE [Concomitant]
     Dosage: NEB SOLUTION
  5. AMBIEN [Concomitant]
  6. AMLODIPINE BESYLATE [Concomitant]
  7. BENAZEPRIL HYDROCHLORIDE [Concomitant]
  8. CARAFATE [Concomitant]
  9. DEXAMETHASONE [Concomitant]
  10. ONDANSETRON HCL [Concomitant]
  11. PROCHLORPERAZINE MALEATE [Concomitant]
  12. RANITIDINE HCL [Concomitant]
  13. VYTORIN [Concomitant]
  14. VENTOLIN DS [Concomitant]
     Route: 055

REACTIONS (16)
  - ASTHENIA [None]
  - BLOOD GLUCOSE INCREASED [None]
  - DEHYDRATION [None]
  - DYSARTHRIA [None]
  - DYSPNOEA [None]
  - FATIGUE [None]
  - HYPERGLYCAEMIA [None]
  - HYPOKALAEMIA [None]
  - HYPONATRAEMIA [None]
  - HYPOTENSION [None]
  - LARYNGITIS [None]
  - MYOCARDIAL INFARCTION [None]
  - OESOPHAGITIS [None]
  - ORAL CANDIDIASIS [None]
  - PNEUMONITIS [None]
  - RESPIRATORY FAILURE [None]
